FAERS Safety Report 5859932-X (Version None)
Quarter: 2008Q3

REPORT INFORMATION
  Report Type: 
  Country: None (occurrence: None)
  Receive Date: 20080818
  Receipt Date: 20080423
  Transmission Date: 20090109
  Serious: No
  Sender: FDA-Public Use
  Company Number: TPA2008A00560

PATIENT
  Sex: Female

DRUGS (3)
  1. ROZEREM [Suspect]
     Dosage: 8 MG, QHS, PER ORAL
     Route: 048
     Dates: start: 20080422
  2. CLOTRIMAZOLE [Concomitant]
  3. UNKNOWN STEROID (ALL OTHER THERAPEUTIC PRODUCTS) [Concomitant]

REACTIONS (2)
  - COUGH [None]
  - DIZZINESS [None]
